FAERS Safety Report 6960905-4 (Version None)
Quarter: 2010Q3

REPORT INFORMATION
  Report Type: 
  Country: None (occurrence: None)
  Receive Date: 20100901
  Receipt Date: 20100805
  Transmission Date: 20110219
  Serious: No
  Sender: FDA-Public Use
  Company Number: US-PFIZER INC-2010099389

PATIENT
  Sex: Male

DRUGS (2)
  1. CAVERJECT [Suspect]
     Dosage: 40 UG, UNK
     Dates: start: 20100101
  2. VIAGRA [Concomitant]
     Indication: ERECTILE DYSFUNCTION
     Dosage: 50 MG, UNK

REACTIONS (1)
  - BURNING SENSATION [None]
